FAERS Safety Report 17591854 (Version 1)
Quarter: 2020Q1

REPORT INFORMATION
  Report Type: Spontaneous
  Country: FR (occurrence: FR)
  Receive Date: 20200327
  Receipt Date: 20200327
  Transmission Date: 20200409
  Serious: Yes (Hospitalization)
  Sender: FDA-Public Use
  Company Number: FR-ABBVIE-20K-056-3335769-00

PATIENT
  Age: 41 Year
  Sex: Male
  Weight: 100 kg

DRUGS (14)
  1. PARACETAMOL MACOPHARMA [Concomitant]
     Active Substance: ACETAMINOPHEN
     Indication: PRODUCT USED FOR UNKNOWN INDICATION
     Dosage: PARACETAMOL MACOPHARMA 10 MG/ML, SOLUTION POUR PERFUSION
  2. CEFOTAXIME [Suspect]
     Active Substance: CEFOTAXIME SODIUM
     Indication: PNEUMONIA
     Dosage: CEFOTAXIME MYLAN 2 G, POUDRE POUR SOLUTION INJECTABLE (IM-IV)
     Route: 041
     Dates: start: 20200310, end: 20200313
  3. SOLU-MEDROL [Concomitant]
     Active Substance: METHYLPREDNISOLONE SODIUM SUCCINATE
     Indication: PRODUCT USED FOR UNKNOWN INDICATION
     Dosage: SOLUMEDROL 120 MG/2 ML, LYOPHILISAT ET SOLUTION POUR USAGE PARENT?RAL
  4. CEFTRIAXONE MYLAN [Concomitant]
     Active Substance: CEFTRIAXONE
     Indication: PRODUCT USED FOR UNKNOWN INDICATION
  5. ROVAMYCINE [Concomitant]
     Active Substance: SPIRAMYCIN
     Indication: PRODUCT USED FOR UNKNOWN INDICATION
  6. SUFENTANIL MYLAN [Concomitant]
     Active Substance: SUFENTANIL
     Indication: PRODUCT USED FOR UNKNOWN INDICATION
     Dosage: SUFENTANIL MYLAN 50 MICROGRAMMES/ML, SOLUTION INJECTABLE
  7. DUPHALAC [Concomitant]
     Active Substance: LACTULOSE
     Indication: PRODUCT USED FOR UNKNOWN INDICATION
     Dosage: DUPHALAC 10 G, POUDRE ORALE OU POUR SOLUTION RECTALE EN SACHET
  8. DIPRIVAN [Concomitant]
     Active Substance: PROPOFOL
     Indication: PRODUCT USED FOR UNKNOWN INDICATION
     Dosage: DIPRIVAN 500 MG/50 ML, ?MULSION INJECTABLE EN SERINGUE PR? - REMPLIE
  9. KALETRA [Suspect]
     Active Substance: LOPINAVIR\RITONAVIR
     Indication: CORONA VIRUS INFECTION
     Route: 048
     Dates: start: 20200310, end: 20200313
  10. MIDAZOLAM MYLAN [Concomitant]
     Active Substance: MIDAZOLAM HYDROCHLORIDE
     Indication: PRODUCT USED FOR UNKNOWN INDICATION
     Dosage: MIDAZOLAM MYLAN 5 MG/ML, SOLUTION INJECTABLE (IM-IV) OU RECTALE
  11. FUROSEMIDE RENAUDIN [Concomitant]
     Active Substance: FUROSEMIDE
     Indication: PRODUCT USED FOR UNKNOWN INDICATION
     Dosage: FUROSEMIDE RENAUDIN 20 MG/2 ML, SOLUTION INJECTABLE (IM-IV)
  12. ATRACURIUM [Concomitant]
     Active Substance: ATRACURIUM
     Indication: PRODUCT USED FOR UNKNOWN INDICATION
  13. NICARDIPINE [Concomitant]
     Active Substance: NICARDIPINE
     Indication: PRODUCT USED FOR UNKNOWN INDICATION
     Dosage: NICARDIPINE ARROW 10 MG/10 ML, SOLUTION INJECTABLE
  14. LOVENOX [Concomitant]
     Active Substance: ENOXAPARIN SODIUM
     Indication: PRODUCT USED FOR UNKNOWN INDICATION

REACTIONS (1)
  - Acute kidney injury [Not Recovered/Not Resolved]

NARRATIVE: CASE EVENT DATE: 20200313
